FAERS Safety Report 23819158 (Version 1)
Quarter: 2024Q2

REPORT INFORMATION
  Report Type: Spontaneous
  Country: CN (occurrence: CN)
  Receive Date: 20240506
  Receipt Date: 20240506
  Transmission Date: 20240715
  Serious: Yes (Hospitalization, Other)
  Sender: FDA-Public Use
  Company Number: CN-AstraZeneca-2024A100707

PATIENT

DRUGS (3)
  1. GOSERELIN [Suspect]
     Active Substance: GOSERELIN
     Indication: Chemotherapy
     Dosage: 3.6 GRAM, EVERY DAY
     Route: 058
     Dates: start: 20240315, end: 20240315
  2. ZOLADEX [Suspect]
     Active Substance: GOSERELIN ACETATE
     Indication: Chemotherapy
     Dosage: UNK
     Route: 065
  3. FULVESTRANT [Suspect]
     Active Substance: FULVESTRANT
     Indication: Chemotherapy
     Dosage: 0.5 GRAM, EVERY DAY
     Route: 030
     Dates: start: 20240315, end: 20240315

REACTIONS (1)
  - Myelosuppression [Recovering/Resolving]

NARRATIVE: CASE EVENT DATE: 20240408
